FAERS Safety Report 10744926 (Version 3)
Quarter: 2015Q3

REPORT INFORMATION
  Report Type: Spontaneous
  Country: US (occurrence: US)
  Receive Date: 20150128
  Receipt Date: 20150715
  Transmission Date: 20151125
  Serious: Yes (Other)
  Sender: FDA-Public Use
  Company Number: US-PFIZER INC-2015024128

PATIENT
  Sex: Female

DRUGS (16)
  1. XANAX [Suspect]
     Active Substance: ALPRAZOLAM
     Dosage: UNK
  2. DEMEROL [Suspect]
     Active Substance: MEPERIDINE HYDROCHLORIDE
     Dosage: UNK
  3. PERCOCET [Suspect]
     Active Substance: ACETAMINOPHEN\OXYCODONE HYDROCHLORIDE
     Dosage: UNK
  4. PROZAC [Suspect]
     Active Substance: FLUOXETINE HYDROCHLORIDE
     Dosage: UNK
  5. MORPHINE SULFATE. [Suspect]
     Active Substance: MORPHINE SULFATE
     Dosage: UNK
  6. ZOLOFT [Suspect]
     Active Substance: SERTRALINE HYDROCHLORIDE
     Dosage: UNK
  7. METAXALONE. [Suspect]
     Active Substance: METAXALONE
     Dosage: UNK
  8. ATIVAN [Suspect]
     Active Substance: LORAZEPAM
     Dosage: UNK
  9. PERCODAN [Suspect]
     Active Substance: ASPIRIN\OXYCODONE HYDROCHLORIDE
     Dosage: UNK
  10. OXYCONTIN [Suspect]
     Active Substance: OXYCODONE HYDROCHLORIDE
  11. LITHIUM CARBONATE. [Suspect]
     Active Substance: LITHIUM CARBONATE
     Dosage: UNK
  12. HYDROMORPHONE [Suspect]
     Active Substance: HYDROMORPHONE
     Dosage: UNK
  13. VALIUM [Suspect]
     Active Substance: DIAZEPAM
     Dosage: UNK
  14. CODEINE [Suspect]
     Active Substance: CODEINE
     Dosage: UNK
  15. TOFRANIL [Suspect]
     Active Substance: IMIPRAMINE HYDROCHLORIDE
     Dosage: UNK
  16. ELAVIL [Suspect]
     Active Substance: AMITRIPTYLINE HYDROCHLORIDE
     Dosage: UNK

REACTIONS (4)
  - Dyspnoea [Unknown]
  - Asthma [Unknown]
  - Hallucination [Unknown]
  - Drug hypersensitivity [Unknown]
